FAERS Safety Report 4351009-8 (Version None)
Quarter: 2004Q2

REPORT INFORMATION
  Report Type: 
  Country: None (occurrence: None)
  Receive Date: 20040407
  Receipt Date: 20040414
  Transmission Date: 20050107
  Serious: Yes (Other)
  Sender: FDA-Public Use
  Company Number: 9926850

PATIENT
  Age: 28 Year
  Sex: Female
  Weight: 64.5 kg

DRUGS (2)
  1. ATARAX [Suspect]
     Indication: ANXIETY
     Dosage: 50 MG (DAILY), INTRAMUSCULAR
     Route: 030
  2. ATROPINE [Suspect]
     Indication: PREMEDICATION
     Dosage: 0.5 MG (DAILY), INTRAMUSCULAR
     Route: 030

REACTIONS (3)
  - CAESAREAN SECTION [None]
  - COMPLICATIONS OF MATERNAL EXPOSURE TO THERAPEUTIC DRUGS [None]
  - HYPERTHERMIA MALIGNANT [None]
